FAERS Safety Report 21598437 (Version 1)
Quarter: 2022Q4

REPORT INFORMATION
  Report Type: Spontaneous
  Country: US (occurrence: US)
  Receive Date: 20221115
  Receipt Date: 20221115
  Transmission Date: 20230113
  Serious: No
  Sender: FDA-Public Use
  Company Number: US-ALLERGAN-2226926US

PATIENT
  Age: 59 Year
  Sex: Female

DRUGS (1)
  1. VUITY [Suspect]
     Active Substance: PILOCARPINE HYDROCHLORIDE
     Indication: Presbyopia
     Dosage: UNK
     Route: 047

REACTIONS (3)
  - Halo vision [Not Recovered/Not Resolved]
  - Vitreous detachment [Recovered/Resolved]
  - Vitreous floaters [Not Recovered/Not Resolved]
